FAERS Safety Report 8372828-7 (Version None)
Quarter: 2012Q2

REPORT INFORMATION
  Report Type: 
  Country: None (occurrence: None)
  Receive Date: 20120521
  Receipt Date: 20120510
  Transmission Date: 20120825
  Serious: Yes (Hospitalization)
  Sender: FDA-Public Use
  Company Number: US-VERTEX PHARMACEUTICALS INC.-AE-2012-005053

PATIENT
  Sex: Female

DRUGS (5)
  1. TRUVADA [Concomitant]
     Indication: HIV TEST POSITIVE
     Dates: start: 20090707
  2. RIBAVIRIN [Suspect]
     Indication: HEPATITIS C
     Route: 048
  3. VX-950 [Suspect]
     Indication: HEPATITIS C
     Route: 048
     Dates: start: 20120312
  4. PEGASYS [Suspect]
     Indication: HEPATITIS C
     Route: 058
     Dates: start: 20120312
  5. ISENTRESS [Concomitant]
     Indication: HIV TEST POSITIVE
     Dates: start: 20110811

REACTIONS (1)
  - RECTAL HAEMORRHAGE [None]
